FAERS Safety Report 21214468 (Version 4)
Quarter: 2022Q3

REPORT INFORMATION
  Report Type: Report from Study
  Country: US (occurrence: US)
  Receive Date: 20220816
  Receipt Date: 20220831
  Transmission Date: 20221026
  Serious: Yes (Hospitalization, Other)
  Sender: FDA-Public Use
  Company Number: US-ABBVIE-22K-163-4501635-00

PATIENT
  Sex: Male

DRUGS (3)
  1. HUMIRA [Suspect]
     Active Substance: ADALIMUMAB
     Indication: Rheumatoid arthritis
     Dosage: CITRATE FREE
     Route: 058
  2. HUMIRA [Suspect]
     Active Substance: ADALIMUMAB
     Dosage: CITRATE FREE?SIX OR SEVEN YEARS
     Route: 058
  3. MODERNA COVID-19 VACCINE [Concomitant]
     Active Substance: ELASOMERAN
     Indication: COVID-19 immunisation
     Route: 030

REACTIONS (16)
  - Neck injury [Not Recovered/Not Resolved]
  - Intervertebral disc injury [Recovering/Resolving]
  - Fall [Recovered/Resolved]
  - Back pain [Recovering/Resolving]
  - Head injury [Unknown]
  - Limb injury [Unknown]
  - Intentional dose omission [Unknown]
  - Mobility decreased [Unknown]
  - Memory impairment [Unknown]
  - Spinal column injury [Recovering/Resolving]
  - Back injury [Unknown]
  - Hypoacusis [Not Recovered/Not Resolved]
  - Coccydynia [Not Recovered/Not Resolved]
  - Influenza [Unknown]
  - Fall [Unknown]
  - Limb injury [Unknown]

NARRATIVE: CASE EVENT DATE: 20200101
